FAERS Safety Report 7911641-9 (Version None)
Quarter: 2011Q4

REPORT INFORMATION
  Report Type: 
  Country: None (occurrence: None)
  Receive Date: 20111114
  Receipt Date: 20111114
  Transmission Date: 20120403
  Serious: No
  Sender: FDA-Public Use
  Company Number: None

PATIENT
  Age: 64 Year
  Sex: Female
  Weight: 54.431 kg

DRUGS (1)
  1. DEXILANT [Suspect]
     Indication: GASTROOESOPHAGEAL REFLUX DISEASE
     Dosage: 60 MG
     Route: 048
     Dates: start: 20110901, end: 20111025

REACTIONS (5)
  - ARTHRALGIA [None]
  - JOINT DISLOCATION [None]
  - PAIN [None]
  - MUSCULOSKELETAL DISORDER [None]
  - DISCOMFORT [None]
